FAERS Safety Report 8004122-8 (Version None)
Quarter: 2011Q4

REPORT INFORMATION
  Report Type: 
  Country: None (occurrence: None)
  Receive Date: 20111222
  Receipt Date: 20111208
  Transmission Date: 20120403
  Serious: Yes (Hospitalization)
  Sender: FDA-Public Use
  Company Number: GB-BRISTOL-MYERS SQUIBB COMPANY-16311219

PATIENT
  Age: 73 Year
  Sex: Female

DRUGS (7)
  1. FUROSEMIDE [Suspect]
     Dosage: MEDICATIONS WERE WITHELD DUE THE EVENT
     Route: 048
  2. METFORMIN HCL [Suspect]
     Dosage: MEDICATIONS WERE WITHELD DUE THE EVENT
     Route: 048
  3. ACETYLSALICYLIC ACID SRT [Suspect]
     Dosage: MEDICATIONS WERE WITHELD DUE THE EVENT
     Route: 048
  4. MOXONIDINE [Concomitant]
     Route: 048
  5. SIMVASTATIN [Concomitant]
     Route: 048
  6. RAMIPRIL [Suspect]
     Dosage: MEDICATIONS WERE WITHELD DUE THE EVENT
     Route: 048
  7. QUININE SULFATE [Concomitant]
     Route: 048

REACTIONS (2)
  - HYPERKALAEMIA [None]
  - RENAL FAILURE ACUTE [None]
